FAERS Safety Report 23502452 (Version 1)
Quarter: 2024Q1

REPORT INFORMATION
  Report Type: Spontaneous
  Country: US (occurrence: US)
  Receive Date: 20240208
  Receipt Date: 20240208
  Transmission Date: 20240409
  Serious: No
  Sender: FDA-Public Use
  Company Number: US-INTRA-CELLULAR THERAPIES, INC.-2023ICT00040

PATIENT
  Age: 48 Year
  Sex: Female

DRUGS (9)
  1. CAPLYTA [Suspect]
     Active Substance: LUMATEPERONE
     Indication: Bipolar disorder
     Dosage: 42 MG (1 CAPSULE), 1X/DAY AT BEDTIME
     Route: 048
     Dates: start: 202208, end: 20230116
  2. CAPLYTA [Suspect]
     Active Substance: LUMATEPERONE
     Dosage: 42 MG (1 CAPSULE), 1X/DAY AT BEDTIME
     Route: 048
     Dates: start: 20230120
  3. VIIBRYD [Suspect]
     Active Substance: VILAZODONE HYDROCHLORIDE
     Dosage: 5 MG, 1X/DAY AT BEDTIME
     Route: 048
     Dates: start: 20221130, end: 20221210
  4. VIIBRYD [Suspect]
     Active Substance: VILAZODONE HYDROCHLORIDE
     Dosage: UNK
     Dates: start: 20221226
  5. QUVIVIQ [Suspect]
     Active Substance: DARIDOREXANT
     Indication: Sleep disorder
     Dosage: 50 MG, 1X/DAY AT BEDIME
     Route: 048
     Dates: start: 202210, end: 20221226
  6. QUVIVIQ [Suspect]
     Active Substance: DARIDOREXANT
     Dosage: UNK
     Dates: start: 20230116
  7. LAMOTRIGINE [Concomitant]
     Active Substance: LAMOTRIGINE
     Dosage: 200 MG, 2X/DAY
     Route: 048
  8. VYVANSE [Concomitant]
     Active Substance: LISDEXAMFETAMINE DIMESYLATE
     Dosage: 40 MG, EVERY MORNING AS NEEDED (ALMOST EVERY DAY)
     Route: 048
     Dates: start: 2018
  9. ADDERALL [Concomitant]
     Active Substance: AMPHETAMINE ASPARTATE\AMPHETAMINE SULFATE\DEXTROAMPHETAMINE SACCHARATE\DEXTROAMPHETAMINE SULFATE
     Dosage: 10 MG, TWICE A DAY AS NEEDED
     Route: 048
     Dates: start: 2018

REACTIONS (4)
  - Vaginal disorder [Not Recovered/Not Resolved]
  - Vulvovaginal dryness [Not Recovered/Not Resolved]
  - Disturbance in sexual arousal [Not Recovered/Not Resolved]
  - Mood swings [Unknown]

NARRATIVE: CASE EVENT DATE: 20221210
